FAERS Safety Report 7302005-X (Version None)
Quarter: 2011Q1

REPORT INFORMATION
  Report Type: 
  Country: None (occurrence: None)
  Receive Date: 20110208
  Receipt Date: 20110127
  Transmission Date: 20110831
  Serious: Yes (Hospitalization, Other)
  Sender: FDA-Public Use
  Company Number: 025274

PATIENT
  Sex: Male

DRUGS (6)
  1. TRICOR [Concomitant]
  2. CRESTOR [Concomitant]
  3. MULTI-VITAMINS [Concomitant]
  4. CIMZIA [Suspect]
     Indication: CROHN'S DISEASE
     Dosage: (400 MG 1X/MONTH SUBCUTANEOUS)
     Route: 058
     Dates: start: 20091001
  5. SINGULAIR [Concomitant]
  6. ENTOCORT EC [Concomitant]

REACTIONS (10)
  - DYSPNOEA [None]
  - CYST [None]
  - RHINORRHOEA [None]
  - BASAL CELL CARCINOMA [None]
  - RASH [None]
  - WHEEZING [None]
  - SINUSITIS [None]
  - CROHN'S DISEASE [None]
  - FURUNCLE [None]
  - NASAL CONGESTION [None]
